FAERS Safety Report 6222637-X (Version None)
Quarter: 2009Q2

REPORT INFORMATION
  Report Type: 
  Country: None (occurrence: None)
  Receive Date: 20090609
  Receipt Date: 20090609
  Transmission Date: 20091009
  Serious: Yes (Other)
  Sender: FDA-Public Use
  Company Number: None

PATIENT
  Age: 40 Year
  Sex: Male

DRUGS (1)
  1. (METHOTREXATE) [Suspect]
     Indication: PSORIASIS
     Dosage: 15 MG, INTRAVENOUS
     Route: 042
     Dates: start: 20070507

REACTIONS (9)
  - BLISTER [None]
  - BONE MARROW FAILURE [None]
  - CLONIC CONVULSION [None]
  - DEPRESSED LEVEL OF CONSCIOUSNESS [None]
  - DRUG ERUPTION [None]
  - ERYTHEMA MULTIFORME [None]
  - GINGIVAL BLEEDING [None]
  - HAEMOPTYSIS [None]
  - MELAENA [None]
